FAERS Safety Report 9417189 (Version 2)
Quarter: 2013Q3

REPORT INFORMATION
  Report Type: Spontaneous
  Country: US (occurrence: US)
  Receive Date: 20130724
  Receipt Date: 20130805
  Transmission Date: 20140515
  Serious: Yes (Hospitalization)
  Sender: FDA-Public Use
  Company Number: US-BAYER-2013-088498

PATIENT
  Age: 91 Year
  Sex: Female
  Weight: 82 kg

DRUGS (9)
  1. PHILLIPS^ MILK OF MAGNESIA [Suspect]
     Indication: CONSTIPATION
     Dosage: 1 TBSP, QD
     Route: 048
     Dates: start: 201307
  2. COREG [Concomitant]
     Dosage: UNK
  3. LASIX [Concomitant]
     Dosage: UNK
  4. GLYBURIDE [Concomitant]
     Dosage: UNK
  5. DEXILANT [Concomitant]
     Dosage: UNK
  6. LISINOPRIL [Concomitant]
     Dosage: UNK
  7. COUMADIN [Concomitant]
     Dosage: UNK
  8. NAPROXEN [Suspect]
     Dosage: 2 DF, PRN
  9. IBUPROFEN [Suspect]
     Dosage: UNK

REACTIONS (6)
  - Faeces discoloured [Recovered/Resolved]
  - Asthenia [Recovered/Resolved]
  - Muscular weakness [Recovered/Resolved]
  - Anaemia [Recovered/Resolved]
  - Haemorrhage [Recovered/Resolved]
  - Incorrect drug administration duration [None]
